FAERS Safety Report 10278643 (Version 3)
Quarter: 2014Q3

REPORT INFORMATION
  Report Type: Spontaneous
  Country: JP (occurrence: JP)
  Receive Date: 20140704
  Receipt Date: 20140722
  Transmission Date: 20150326
  Serious: Yes (Other)
  Sender: FDA-Public Use
  Company Number: JP-UCBSA-121381

PATIENT
  Age: 19 Year
  Sex: Male

DRUGS (5)
  1. KEPPRA [Suspect]
     Active Substance: LEVETIRACETAM
     Dosage: 500 MG, 2X/DAY (BID)
     Route: 048
     Dates: start: 20111018, end: 20111107
  2. DEPAKENE [Concomitant]
     Active Substance: VALPROIC ACID
     Dosage: UNK
     Route: 048
     Dates: start: 20051107
  3. RIVOTRIL [Concomitant]
     Active Substance: CLONAZEPAM
     Dosage: UNK
     Route: 048
     Dates: start: 20031201
  4. KEPPRA [Suspect]
     Active Substance: LEVETIRACETAM
     Dosage: 2000 MG, ONCE DAILY (QD)
     Route: 048
     Dates: start: 20111108, end: 20111126
  5. ALEVIATIN [Concomitant]
     Active Substance: PHENYTOIN SODIUM
     Dosage: UNK
     Route: 048
     Dates: start: 20060313

REACTIONS (2)
  - Status epilepticus [Recovered/Resolved]
  - Epilepsy [Recovered/Resolved]

NARRATIVE: CASE EVENT DATE: 20111113
